FAERS Safety Report 25505058 (Version 1)
Quarter: 2025Q3

REPORT INFORMATION
  Report Type: Report from Study
  Country: EU (occurrence: EU)
  Receive Date: 20250702
  Receipt Date: 20250702
  Transmission Date: 20251020
  Serious: Yes (Other)
  Sender: AUROBINDO
  Company Number: EU-NAPPMUNDI-GBR-2019-0066506

PATIENT
  Age: 32 Year
  Sex: Male

DRUGS (4)
  1. ACETAMINOPHEN [Suspect]
     Active Substance: ACETAMINOPHEN
     Indication: Abdominal pain
     Route: 065
  2. TRAMADOL [Suspect]
     Active Substance: TRAMADOL
     Indication: Product used for unknown indication
     Route: 065
  3. NEFOPAM [Suspect]
     Active Substance: NEFOPAM
     Indication: Abdominal pain
     Route: 016
  4. MORPHINE SULFATE [Suspect]
     Active Substance: MORPHINE SULFATE
     Indication: Abdominal pain
     Route: 016

REACTIONS (3)
  - Abdominal pain [Unknown]
  - Drug screen false positive [Unknown]
  - Drug ineffective [Unknown]
